FAERS Safety Report 14472851 (Version 1)
Quarter: 2018Q1

REPORT INFORMATION
  Report Type: Spontaneous
  Country: MX (occurrence: MX)
  Receive Date: 20180201
  Receipt Date: 20180201
  Transmission Date: 20180509
  Serious: Yes (Other)
  Sender: FDA-Public Use
  Company Number: MX-EMD SERONO-9009116

PATIENT
  Sex: Male

DRUGS (1)
  1. SAIZEN [Suspect]
     Active Substance: SOMATROPIN
     Indication: PRODUCT USED FOR UNKNOWN INDICATION

REACTIONS (5)
  - Feeling abnormal [Recovered/Resolved]
  - Emotional disorder [Unknown]
  - Throat tightness [Recovered/Resolved]
  - Hypersensitivity [Unknown]
  - Inflammation [Recovered/Resolved]

NARRATIVE: CASE EVENT DATE: 201801
